FAERS Safety Report 10392560 (Version 1)
Quarter: 2014Q3

REPORT INFORMATION
  Report Type: Spontaneous
  Country: US (occurrence: US)
  Receive Date: 20140819
  Receipt Date: 20140819
  Transmission Date: 20150326
  Serious: No
  Sender: FDA-Public Use
  Company Number: US-PFIZER INC-2014227171

PATIENT
  Age: 58 Year
  Sex: Male
  Weight: 77.1 kg

DRUGS (2)
  1. NEURONTIN [Suspect]
     Active Substance: GABAPENTIN
     Indication: NEUROPATHY PERIPHERAL
     Dosage: 900 MG, 1X/DAY
     Route: 048
     Dates: start: 201406, end: 2014
  2. NEURONTIN [Suspect]
     Active Substance: GABAPENTIN
     Dosage: 1600 MG, 1X/DAY
     Route: 048
     Dates: start: 2014

REACTIONS (1)
  - Drug ineffective [Unknown]

NARRATIVE: CASE EVENT DATE: 2014
